FAERS Safety Report 4653995-5 (Version None)
Quarter: 2005Q2

REPORT INFORMATION
  Report Type: 
  Country: None (occurrence: None)
  Receive Date: 20050404
  Receipt Date: 20041201
  Transmission Date: 20051028
  Serious: No
  Sender: FDA-Public Use
  Company Number: USA041285007

PATIENT
  Age: 56 Year
  Sex: Female

DRUGS (6)
  1. CYMBALTA [Suspect]
     Indication: DEPRESSION
     Dosage: 60 MG DAY
  2. EFFEXOR [Concomitant]
  3. TOPAMAX [Concomitant]
  4. NEURONTIN (GABAPENTIN  PFIZER) [Concomitant]
  5. BLOOD PRESSURE MEDICATION [Concomitant]
  6. HORMONE REPLACEMENT THERAPY [Concomitant]

REACTIONS (1)
  - SUICIDAL IDEATION [None]
